FAERS Safety Report 5486766-0 (Version None)
Quarter: 2007Q4

REPORT INFORMATION
  Report Type: 
  Country: None (occurrence: None)
  Receive Date: 20071016
  Receipt Date: 20071010
  Transmission Date: 20080405
  Serious: Yes (Life-Threatening, Hospitalization)
  Sender: FDA-Public Use
  Company Number: B0469558A

PATIENT
  Age: 63 Year
  Sex: Male
  Weight: 63 kg

DRUGS (6)
  1. PAXIL [Suspect]
     Indication: DEPRESSION
     Dosage: 10MG PER DAY
     Route: 048
     Dates: start: 20070125, end: 20070303
  2. PEGINTERFERON ALFA-2A [Suspect]
     Indication: HEPATITIS C
     Route: 058
     Dates: start: 20070125, end: 20070301
  3. REBETOL [Concomitant]
     Dosage: 600MG PER DAY
     Route: 048
  4. ROHYPNOL [Concomitant]
     Dosage: 1MG PER DAY
     Route: 065
  5. ZOLPIDEM [Concomitant]
     Route: 048
     Dates: start: 20070125
  6. UNKNOWN DRUG [Concomitant]

REACTIONS (26)
  - ALTERED STATE OF CONSCIOUSNESS [None]
  - AMYOTROPHY [None]
  - ANOREXIA [None]
  - BLOOD CREATINE PHOSPHOKINASE INCREASED [None]
  - DEPRESSED LEVEL OF CONSCIOUSNESS [None]
  - DISCOMFORT [None]
  - DISORIENTATION [None]
  - DIZZINESS [None]
  - DIZZINESS POSTURAL [None]
  - DYSURIA [None]
  - ENCEPHALITIS [None]
  - HEADACHE [None]
  - HYPERTHERMIA [None]
  - HYPONATRAEMIA [None]
  - INAPPROPRIATE ANTIDIURETIC HORMONE SECRETION [None]
  - INFLAMMATION [None]
  - MENINGITIS [None]
  - MICTURITION URGENCY [None]
  - MUSCULAR WEAKNESS [None]
  - MYDRIASIS [None]
  - NAUSEA [None]
  - NEUROLEPTIC MALIGNANT SYNDROME [None]
  - NUCHAL RIGIDITY [None]
  - PYREXIA [None]
  - RESTLESSNESS [None]
  - URINARY RETENTION [None]
